FAERS Safety Report 7822019-0 (Version None)
Quarter: 2011Q4

REPORT INFORMATION
  Report Type: 
  Country: None (occurrence: None)
  Receive Date: 20111018
  Receipt Date: 20111006
  Transmission Date: 20120403
  Serious: Yes (Hospitalization)
  Sender: FDA-Public Use
  Company Number: PHHO2010DE16316

PATIENT
  Sex: Male

DRUGS (5)
  1. MYFORTIC [Suspect]
     Indication: RENAL TRANSPLANT
     Dosage: 2060 MG, BID
     Route: 048
     Dates: start: 20100815, end: 20100827
  2. PREDNISONE [Concomitant]
     Indication: RENAL TRANSPLANT
     Dosage: 10 MG, BID
     Route: 048
     Dates: start: 20100825
  3. SANDIMMUNE [Concomitant]
     Indication: RENAL TRANSPLANT
     Dosage: 200 MG, BID
     Route: 048
     Dates: start: 20100807
  4. MYFORTIC [Suspect]
     Dosage: UNK
     Route: 048
     Dates: start: 20100901
  5. NO TREATMENT RECEIVED [Suspect]
     Indication: RENAL TRANSPLANT
     Dosage: UNK

REACTIONS (6)
  - DYSPNOEA [None]
  - OCULAR ICTERUS [None]
  - CHOLECYSTITIS [None]
  - SEROMA [None]
  - CHOLESTASIS [None]
  - NEPHROGENIC ANAEMIA [None]
